FAERS Safety Report 6699962-1 (Version None)
Quarter: 2010Q2

REPORT INFORMATION
  Report Type: 
  Country: None (occurrence: None)
  Receive Date: 20100428
  Receipt Date: 20100416
  Transmission Date: 20101027
  Serious: Yes (Other)
  Sender: FDA-Public Use
  Company Number: PHHY2010ES23710

PATIENT
  Age: 83 Year
  Sex: Male

DRUGS (1)
  1. ZOMETA [Suspect]
     Indication: HYPERCALCAEMIA OF MALIGNANCY
     Dosage: 4 MG, QMO
     Dates: start: 20090328, end: 20100126

REACTIONS (1)
  - OSTEONECROSIS [None]
